FAERS Safety Report 20409761 (Version 1)
Quarter: 2022Q1

REPORT INFORMATION
  Report Type: Spontaneous
  Country: US (occurrence: US)
  Receive Date: 20220201
  Receipt Date: 20220201
  Transmission Date: 20220423
  Serious: No
  Sender: FDA-Public Use
  Company Number: US-SAREPTA THERAPEUTICS INC.-SRP2021-001637

PATIENT
  Age: 20 Year
  Sex: Male
  Weight: 72.2 kg

DRUGS (3)
  1. AMONDYS 45 [Suspect]
     Active Substance: CASIMERSEN
     Indication: Duchenne muscular dystrophy
     Dosage: 2200 MILLIGRAM,WEEKLY
     Route: 042
     Dates: start: 20210809, end: 20210816
  2. CELLCEPT [Concomitant]
     Active Substance: MYCOPHENOLATE MOFETIL
     Indication: Duchenne muscular dystrophy
     Dosage: 750 MILLIGRAM, BID
     Dates: start: 2011
  3. OMEPRAZOLE [Concomitant]
     Active Substance: OMEPRAZOLE
     Indication: Duchenne muscular dystrophy
     Dosage: 20 MILLIGRAM, QD
     Dates: start: 2011

REACTIONS (2)
  - Product dose omission issue [Unknown]
  - No adverse event [Unknown]

NARRATIVE: CASE EVENT DATE: 20210816
